FAERS Safety Report 4946583-4 (Version None)
Quarter: 2006Q1

REPORT INFORMATION
  Report Type: 
  Country: None (occurrence: None)
  Receive Date: 20060317
  Receipt Date: 20060310
  Transmission Date: 20060701
  Serious: Yes (Hospitalization)
  Sender: FDA-Public Use
  Company Number: JP-JPN-A200600917

PATIENT
  Age: 32 Year
  Sex: Male

DRUGS (2)
  1. PAXIL [Suspect]
     Indication: COMPULSIONS
     Route: 048
     Dates: start: 20060106, end: 20060222
  2. CONTOMIN [Concomitant]
     Dosage: 100MG PER DAY
     Route: 065

REACTIONS (3)
  - HALLUCINATION [None]
  - HALLUCINATION, AUDITORY [None]
  - INTENTIONAL SELF-INJURY [None]
